FAERS Safety Report 7553918-5 (Version None)
Quarter: 2011Q2

REPORT INFORMATION
  Report Type: 
  Country: None (occurrence: None)
  Receive Date: 20110617
  Receipt Date: 20110607
  Transmission Date: 20111010
  Serious: Yes (Hospitalization)
  Sender: FDA-Public Use
  Company Number: US-AMGEN-USASP2011029455

PATIENT
  Age: 68 Year
  Sex: Female

DRUGS (2)
  1. ENBREL [Suspect]
     Dosage: 50 MG, QMO
     Dates: start: 20020301
  2. ENBREL [Suspect]
     Indication: RHEUMATOID ARTHRITIS
     Dosage: 50 MG, Q2WK
     Dates: start: 20020301

REACTIONS (6)
  - INJECTION SITE DISCOMFORT [None]
  - PAIN IN EXTREMITY [None]
  - HIP ARTHROPLASTY [None]
  - INJECTION SITE PRURITUS [None]
  - GOUT [None]
  - CONTUSION [None]
